FAERS Safety Report 8057044-0 (Version None)
Quarter: 2012Q1

REPORT INFORMATION
  Report Type: 
  Country: None (occurrence: None)
  Receive Date: 20120119
  Receipt Date: 20120113
  Transmission Date: 20120608
  Serious: No
  Sender: FDA-Public Use
  Company Number: US-BAYER-2012-004521

PATIENT
  Age: 50 Year
  Sex: Female

DRUGS (1)
  1. MENOSTAR [Suspect]
     Dosage: UNK
     Dates: start: 20110101

REACTIONS (2)
  - MALABSORPTION [None]
  - BLOOD OESTROGEN DECREASED [None]
